FAERS Safety Report 17291552 (Version 2)
Quarter: 2020Q1

REPORT INFORMATION
  Report Type: Spontaneous
  Country: FR (occurrence: FR)
  Receive Date: 20200121
  Receipt Date: 20200204
  Transmission Date: 20200409
  Serious: Yes (Hospitalization)
  Sender: FDA-Public Use
  Company Number: FR-ROCHE-2518774

PATIENT
  Sex: Male

DRUGS (11)
  1. PEGASYS [Suspect]
     Active Substance: PEGINTERFERON ALFA-2A
     Dosage: 180 MICROGRAM, EVERY 1 WEEK
     Route: 065
     Dates: start: 2009, end: 2009
  2. DACLATASVIR. [Suspect]
     Active Substance: DACLATASVIR
     Indication: HEPATITIS C
     Dosage: 60 MILLIGRAM, EVERY 1 DAY
     Route: 048
     Dates: start: 20140627, end: 20141211
  3. RIBAVIRIN. [Suspect]
     Active Substance: RIBAVIRIN
     Dosage: 200 MILLIGRAM, EVERY 3 DAYS
     Route: 048
     Dates: start: 20120112, end: 20120611
  4. RIBAVIRIN. [Suspect]
     Active Substance: RIBAVIRIN
     Dosage: 200 MILLIGRAM, EVERY 5 DAYS
     Route: 048
     Dates: start: 1999, end: 2000
  5. RIBAVIRIN. [Suspect]
     Active Substance: RIBAVIRIN
     Dosage: 200 MILLIGRAM, EVERY 6 DAYS
     Route: 048
     Dates: start: 2007, end: 2009
  6. VICTRELIS [Suspect]
     Active Substance: BOCEPREVIR
     Indication: HEPATITIS C
     Dosage: 200 MILLIGRAM, Q4D
     Route: 048
     Dates: start: 20120214, end: 20120711
  7. SOVALDI [Suspect]
     Active Substance: SOFOSBUVIR
     Indication: HEPATITIS C
     Dosage: 400 MILLIGRAM EVERY 1 DAY
     Route: 048
     Dates: start: 20140627, end: 20141211
  8. RIBAVIRIN. [Suspect]
     Active Substance: RIBAVIRIN
     Indication: HEPATITIS C
     Dosage: 200 MILLIGRAM, EVERY 5 WEEKS
     Route: 048
     Dates: start: 2001, end: 2001
  9. RIBAVIRIN. [Suspect]
     Active Substance: RIBAVIRIN
     Dosage: 200 MILLIGRAM, EVERY 3 DAYS
     Route: 048
     Dates: start: 2009, end: 2009
  10. PEGASYS [Suspect]
     Active Substance: PEGINTERFERON ALFA-2A
     Indication: HEPATITIS C
     Dosage: 180 MICROGRAM,EVERY 1 WEEK
     Route: 065
     Dates: start: 2007, end: 2009
  11. VIRAFERONPEG [Suspect]
     Active Substance: PEGINTERFERON ALFA-2B
     Indication: HEPATITIS C
     Dosage: 100 MICROGRAM,EVERY 1 WEEK
     Route: 065

REACTIONS (4)
  - Transitional cell carcinoma [Unknown]
  - Abdominal pain [Recovering/Resolving]
  - Hepatocellular carcinoma [Recovering/Resolving]
  - Hepatic function abnormal [Recovering/Resolving]

NARRATIVE: CASE EVENT DATE: 20151116
